FAERS Safety Report 6555633-3 (Version None)
Quarter: 2010Q1

REPORT INFORMATION
  Report Type: 
  Country: None (occurrence: None)
  Receive Date: 20100128
  Receipt Date: 20100114
  Transmission Date: 20100710
  Serious: Yes (Hospitalization, Other)
  Sender: FDA-Public Use
  Company Number: PHEH2008US06030

PATIENT
  Sex: Female
  Weight: 65.76 kg

DRUGS (26)
  1. VIVELLE [Suspect]
     Indication: HORMONE REPLACEMENT THERAPY
     Dosage: 0.05 MG, UNK
     Route: 062
  2. VIVELLE [Suspect]
     Indication: HOT FLUSH
     Dosage: 0.1 MG, UNK
  3. PREMPRO [Suspect]
  4. PREMARIN [Suspect]
  5. ESTROPIPATE [Suspect]
  6. OGEN [Suspect]
     Dosage: 1.25 UNK, UNK
  7. STEROIDS NOS [Concomitant]
  8. PREVACID [Concomitant]
  9. PLAQUENIL [Concomitant]
     Dosage: 200 MG, DAILY
  10. PREDNISONE TAB [Concomitant]
     Indication: SYSTEMIC LUPUS ERYTHEMATOSUS
  11. MEGACE [Concomitant]
  12. PROCRIT                            /00909301/ [Concomitant]
     Dosage: UNK, Q WEEK X 4
     Dates: start: 20050901
  13. AMOXICILLIN [Concomitant]
     Indication: RASH
     Dosage: 500 MG, TID
  14. CHLOROQUINE PHOSPHATE [Concomitant]
     Dosage: 200 MG, DAILY
  15. CIMETIDINE [Concomitant]
  16. IMURAN [Concomitant]
     Dosage: 100 MG, DAILY
  17. LORTAB [Concomitant]
  18. TYLOX [Concomitant]
     Dosage: UNK
  19. PERCOCET [Concomitant]
  20. FOLIC ACID [Concomitant]
     Dosage: 1 MG, DAILY
  21. POTASSIUM CHLORIDE [Concomitant]
  22. METHOTREXATE [Concomitant]
  23. HYDROCODONE BITARTRATE + ACETAMINOPHEN [Concomitant]
  24. FEXOFENADINE [Concomitant]
     Dosage: 180 MG, DAILY
  25. ACIPHEX [Concomitant]
  26. AZATHIOPRINE [Concomitant]
     Dosage: 50 MG, UNK

REACTIONS (24)
  - ANAEMIA [None]
  - BREAST CANCER [None]
  - BREAST CELLULITIS [None]
  - BREAST DISCHARGE [None]
  - BREAST LUMP REMOVAL [None]
  - COUGH [None]
  - DIZZINESS [None]
  - ERYTHEMA [None]
  - GAIT DISTURBANCE [None]
  - HOT FLUSH [None]
  - HYPONATRAEMIA [None]
  - INSOMNIA [None]
  - LYMPHADENECTOMY [None]
  - MASTECTOMY [None]
  - NIPPLE DISORDER [None]
  - OEDEMA PERIPHERAL [None]
  - OSTEOARTHRITIS [None]
  - RENAL FAILURE ACUTE [None]
  - SEPSIS [None]
  - SKIN ULCER [None]
  - SYNCOPE [None]
  - URINARY INCONTINENCE [None]
  - URINARY TRACT INFECTION [None]
  - WEIGHT DECREASED [None]
